FAERS Safety Report 6297553-8 (Version None)
Quarter: 2009Q3

REPORT INFORMATION
  Report Type: 
  Country: None (occurrence: None)
  Receive Date: 20090805
  Receipt Date: 20090728
  Transmission Date: 20100115
  Serious: Yes (Death)
  Sender: FDA-Public Use
  Company Number: ZA-BAYER-200926470GPV

PATIENT
  Age: 50 Year
  Sex: Female

DRUGS (3)
  1. AVELON [Suspect]
     Indication: BRONCHITIS
     Dosage: TOTAL DAILY DOSE: 400 MG  UNIT DOSE: 400 MG
     Route: 048
     Dates: start: 20090725, end: 20090725
  2. VENTOLIN [Concomitant]
     Indication: ASTHMA
  3. SOLPHYLLEX [Concomitant]
     Indication: ASTHMA

REACTIONS (1)
  - ARRHYTHMIA [None]
